FAERS Safety Report 4472929-X (Version None)
Quarter: 2004Q4

REPORT INFORMATION
  Report Type: 
  Country: None (occurrence: None)
  Receive Date: 20041007
  Receipt Date: 20041007
  Transmission Date: 20050328
  Serious: Yes (Hospitalization)
  Sender: FDA-Public Use
  Company Number: None

PATIENT
  Age: 34 Year
  Sex: Female
  Weight: 48.5349 kg

DRUGS (1)
  1. AVONEX [Suspect]
     Indication: MULTIPLE SCLEROSIS
     Dosage: 30 MCG IM ONCE WEEKLY
     Route: 030
     Dates: start: 20040930

REACTIONS (5)
  - ADVERSE DRUG REACTION [None]
  - CONDITION AGGRAVATED [None]
  - HEMIPARESIS [None]
  - MULTIPLE SCLEROSIS [None]
  - VISION BLURRED [None]
